FAERS Safety Report 25683844 (Version 2)
Quarter: 2025Q3

REPORT INFORMATION
  Report Type: Report from Study
  Country: US (occurrence: US)
  Receive Date: 20250814
  Receipt Date: 20250825
  Transmission Date: 20251020
  Serious: Yes (Other)
  Sender: ABBVIE
  Company Number: US-ABBVIE-6414563

PATIENT
  Age: 78 Year
  Sex: Male
  Weight: 64.41 kg

DRUGS (2)
  1. SKYRIZI [Suspect]
     Active Substance: RISANKIZUMAB-RZAA
     Indication: Crohn^s disease
     Route: 058
     Dates: start: 20250210
  2. WARFARIN [Concomitant]
     Active Substance: WARFARIN
     Indication: Cerebrovascular accident

REACTIONS (5)
  - Spinal fracture [Recovering/Resolving]
  - Fall [Not Recovered/Not Resolved]
  - Back pain [Recovering/Resolving]
  - Dizziness [Not Recovered/Not Resolved]
  - Skin abrasion [Recovered/Resolved]

NARRATIVE: CASE EVENT DATE: 20250401
